FAERS Safety Report 8879028 (Version 1)
Quarter: 2012Q4

REPORT INFORMATION
  Report Type: Spontaneous
  Country: US (occurrence: None)
  Receive Date: 20121031
  Receipt Date: 20121031
  Transmission Date: 20130627
  Serious: No
  Sender: FDA-Public Use
  Company Number: None

PATIENT
  Sex: Female
  Weight: 78.02 kg

DRUGS (1)
  1. VALSARTAN AND HYDROCHLOROTHIAZIDE [Suspect]
     Dosage: 1 TAB DAILY PO
     Route: 048
     Dates: start: 20121023, end: 20121026

REACTIONS (3)
  - Nausea [None]
  - Vomiting [None]
  - Product substitution issue [None]
